FAERS Safety Report 7177601-3 (Version None)
Quarter: 2010Q4

REPORT INFORMATION
  Report Type: 
  Country: None (occurrence: None)
  Receive Date: 20101123
  Receipt Date: 20101008
  Transmission Date: 20110411
  Serious: No
  Sender: FDA-Public Use
  Company Number: 019774

PATIENT
  Sex: Female
  Weight: 89.8 kg

DRUGS (10)
  1. CIMZIA [Suspect]
     Indication: CROHN'S DISEASE
     Dosage: (400 MG, WEEK 0,2 + 4 (3RD DOSING) AND THEN Q4 WEEKS SUBCUTANEOUS)
     Route: 058
     Dates: start: 20100828, end: 20101008
  2. REGLAN [Concomitant]
  3. PRILOSEC [Concomitant]
  4. PENTASA [Concomitant]
  5. TOPROL-XL [Concomitant]
  6. EXCEDRIN /00214201/ [Concomitant]
  7. HYOSCYAMINE [Concomitant]
  8. TRIAMTERENE AND HYDROCHLOROTHIAZIDE [Concomitant]
  9. M.V.I. [Concomitant]
  10. VITAMIN D [Concomitant]

REACTIONS (7)
  - ERYTHEMA [None]
  - FEELING HOT [None]
  - OEDEMA PERIPHERAL [None]
  - PRURITUS [None]
  - PRURITUS GENERALISED [None]
  - RASH [None]
  - SWELLING FACE [None]
